FAERS Safety Report 8796111 (Version 3)
Quarter: 2013Q2

REPORT INFORMATION
  Report Type: Spontaneous
  Country: IT (occurrence: IT)
  Receive Date: 20120919
  Receipt Date: 20130403
  Transmission Date: 20140414
  Serious: Yes (Hospitalization)
  Sender: FDA-Public Use
  Company Number: IT-BRISTOL-MYERS SQUIBB COMPANY-16948812

PATIENT
  Age: 64 Year
  Sex: Male

DRUGS (8)
  1. CARBOPLATIN [Suspect]
     Indication: LUNG ADENOCARCINOMA
     Dosage: 400MCG/MQ
     Route: 042
     Dates: start: 20120712, end: 20120712
  2. GEMCITABINE [Suspect]
     Indication: LUNG ADENOCARCINOMA
     Dosage: 1000MG/MQ
     Route: 042
     Dates: start: 20120712, end: 20120712
  3. FRAGMIN [Concomitant]
  4. TACHIDOL [Concomitant]
  5. ORAMORPH [Concomitant]
  6. MEDROL [Concomitant]
  7. CLENIL [Concomitant]
     Indication: INHALATION THERAPY
     Dosage: 0.8MG/2ML
  8. OXIVENT [Concomitant]
     Indication: INHALATION THERAPY
     Dosage: 1,5MG/ML

REACTIONS (2)
  - Hepatitis acute [Unknown]
  - Pancreatic enzyme abnormality [Unknown]
